FAERS Safety Report 8969155 (Version 1)
Quarter: 2012Q4

REPORT INFORMATION
  Report Type: Spontaneous
  Country: US (occurrence: None)
  Receive Date: 20121214
  Receipt Date: 20121214
  Transmission Date: 20130627
  Serious: No
  Sender: FDA-Public Use
  Company Number: None

PATIENT
  Age: 11 Year
  Sex: Male
  Weight: 40.82 kg

DRUGS (1)
  1. BANANA BOAT KIDS SUNBLOCK [Suspect]
     Indication: PREVENTION
     Dates: start: 20120723, end: 20120723

REACTIONS (3)
  - Sunburn [None]
  - Product quality issue [None]
  - Pain [None]
